FAERS Safety Report 15943565 (Version 1)
Quarter: 2019Q1

REPORT INFORMATION
  Report Type: Spontaneous
  Country: US (occurrence: US)
  Receive Date: 20190210
  Receipt Date: 20190210
  Transmission Date: 20190417
  Serious: No
  Sender: FDA-Public Use
  Company Number: US-JNJFOC-20190122254

PATIENT
  Age: 5 Decade
  Sex: Male

DRUGS (2)
  1. TYLENOL EXTRA STRENGTH [Suspect]
     Active Substance: ACETAMINOPHEN
     Indication: GOUT
     Dosage: AS NEEDED FOR THE LAST MONTH OR TWO AS NEEDED FOR PAIN
     Route: 048
  2. TYLENOL EXTRA STRENGTH [Suspect]
     Active Substance: ACETAMINOPHEN
     Indication: HEADACHE
     Dosage: AS NEEDED FOR THE LAST MONTH OR TWO AS NEEDED FOR PAIN
     Route: 048

REACTIONS (2)
  - Product commingling [Unknown]
  - Product use in unapproved indication [Unknown]
